FAERS Safety Report 5675736-5 (Version None)
Quarter: 2008Q1

REPORT INFORMATION
  Report Type: 
  Country: None (occurrence: None)
  Receive Date: 20080321
  Receipt Date: 20080313
  Transmission Date: 20080703
  Serious: Yes (Life-Threatening, Hospitalization, Other)
  Sender: FDA-Public Use
  Company Number: JP-BAYER-200810347BYL

PATIENT
  Age: 70 Year
  Sex: Male
  Weight: 44 kg

DRUGS (6)
  1. CIPROXAN-I.V. [Suspect]
     Indication: POSTOPERATIVE WOUND INFECTION
     Dosage: TOTAL DAILY DOSE: 300 MG
     Route: 041
     Dates: start: 20080205, end: 20080205
  2. CIPROXAN-I.V. [Suspect]
     Dosage: TOTAL DAILY DOSE: 300 MG
     Route: 041
     Dates: start: 20080207, end: 20080207
  3. RENAGEL [Concomitant]
     Dosage: TOTAL DAILY DOSE: 1000 MG
     Route: 048
  4. SIGMART [Concomitant]
     Route: 048
  5. GASTER D [Concomitant]
     Dosage: TOTAL DAILY DOSE: 10 MG
     Route: 048
  6. DIOVAN [Concomitant]
     Dosage: TOTAL DAILY DOSE: 160 MG
     Route: 048

REACTIONS (4)
  - DYSARTHRIA [None]
  - FACE OEDEMA [None]
  - LARYNGEAL OEDEMA [None]
  - PYREXIA [None]
